FAERS Safety Report 14507871 (Version 13)
Quarter: 2023Q4

REPORT INFORMATION
  Report Type: Report from Study
  Country: GB (occurrence: GB)
  Receive Date: 20180208
  Receipt Date: 20231108
  Transmission Date: 20240109
  Serious: Yes (Hospitalization, Other)
  Sender: FDA-Public Use
  Company Number: GB-TAKEDA-2016TUS021619

PATIENT
  Sex: Male

DRUGS (34)
  1. METRONIDAZOLE [Suspect]
     Active Substance: METRONIDAZOLE
     Indication: Product used for unknown indication
     Dosage: DOSAGE TEXT: 400 MG, Q8H (TDS FOR 2 WEEKS)
     Route: 065
     Dates: start: 20161013
  2. METRONIDAZOLE [Suspect]
     Active Substance: METRONIDAZOLE
     Dosage: DOSAGE TEXT: 1 DOSAGE FORM
     Route: 065
  3. METRONIDAZOLE [Suspect]
     Active Substance: METRONIDAZOLE
     Dosage: 1200 MG (DOSAGE TEXT: 400 MILLIGRAM, TID)
     Route: 050
  4. VEDOLIZUMAB [Concomitant]
     Active Substance: VEDOLIZUMAB
     Indication: Crohn^s disease
     Dosage: DOSAGE TEXT: UNK (120 UNK THIRD DOSE, MLN0002)
     Route: 042
     Dates: start: 20160505
  5. VEDOLIZUMAB [Concomitant]
     Active Substance: VEDOLIZUMAB
     Dosage: DOSAGE TEXT: UNK (FOURTH DOSE, MLN0002)
     Route: 042
     Dates: start: 20160614
  6. VEDOLIZUMAB [Concomitant]
     Active Substance: VEDOLIZUMAB
     Dosage: DOSAGE TEXT: UNK (SECOND DOSE, MLN0002)
     Route: 042
     Dates: start: 20160809
  7. VEDOLIZUMAB [Concomitant]
     Active Substance: VEDOLIZUMAB
     Dosage: DOSAGE TEXT: UNK (FIRST DOSE, MLN0002)
     Route: 042
     Dates: start: 20161013
  8. VEDOLIZUMAB [Concomitant]
     Active Substance: VEDOLIZUMAB
     Dosage: DOSAGE TEXT: UNK (SECOND DOSE, MLN0002)
     Route: 042
     Dates: start: 20160809
  9. Adcal [Concomitant]
     Indication: Product used for unknown indication
     Dosage: DOSAGE TEXT: 50 MG, QD
     Route: 050
     Dates: start: 20161014
  10. AZATHIOPRINE [Concomitant]
     Active Substance: AZATHIOPRINE
     Indication: Product used for unknown indication
     Dosage: DOSAGE TEXT: 50 MG, ONCE DAILY
     Route: 065
     Dates: start: 20161014
  11. AZATHIOPRINE [Concomitant]
     Active Substance: AZATHIOPRINE
     Dosage: DOSAGE TEXT: 50 MILLIGRAM, QD
     Route: 065
  12. AZATHIOPRINE [Concomitant]
     Active Substance: AZATHIOPRINE
     Dosage: DOSAGE TEXT: 50 MILLIGRAM, QD
     Route: 050
  13. AZATHIOPRINE [Concomitant]
     Active Substance: AZATHIOPRINE
     Dosage: DOSAGE TEXT: 50 MILLIGRAM, QD
     Route: 050
  14. AZATHIOPRINE [Concomitant]
     Active Substance: AZATHIOPRINE
     Dosage: DOSAGE TEXT: 50 MILLIGRAM, QD
     Route: 050
  15. AZATHIOPRINE [Concomitant]
     Active Substance: AZATHIOPRINE
     Dosage: DOSAGE TEXT: 50 MG, QD
     Route: 065
  16. CALCIUM CARBONATE [Concomitant]
     Active Substance: CALCIUM CARBONATE
     Indication: Product used for unknown indication
     Dosage: DOSAGE TEXT: 50 MG, QD
     Route: 065
  17. CALCIUM CARBONATE [Concomitant]
     Active Substance: CALCIUM CARBONATE
     Dosage: DOSAGE TEXT: 50 MG, QD
     Route: 050
  18. FERROUS SULFATE [Concomitant]
     Active Substance: FERROUS SULFATE
     Indication: Product used for unknown indication
     Dosage: DOSAGE TEXT: 5 MILLIGRAM, QD
     Route: 065
     Dates: start: 20161014
  19. FERROUS SULFATE [Concomitant]
     Active Substance: FERROUS SULFATE
     Dosage: DOSAGE TEXT: 50 MILLIGRAM, QD
     Route: 050
  20. FOLIC ACID [Concomitant]
     Active Substance: FOLIC ACID
     Indication: Product used for unknown indication
     Dosage: DOSAGE TEXT: 5 MG, QD
     Route: 050
     Dates: start: 20161014
  21. FOLIC ACID [Concomitant]
     Active Substance: FOLIC ACID
     Dosage: UNK
     Route: 065
  22. INFLIXIMAB [Concomitant]
     Active Substance: INFLIXIMAB
     Indication: Product used for unknown indication
     Dosage: DOSAGE TEXT: 5 MILLIGRAM, QD
     Route: 050
     Dates: start: 20161014
  23. INFLIXIMAB [Concomitant]
     Active Substance: INFLIXIMAB
     Dosage: UNK
     Route: 065
  24. PREDNISOLONE [Concomitant]
     Active Substance: PREDNISOLONE
     Indication: Product used for unknown indication
     Dosage: DOSAGE TEXT: 50 MG, QD
     Route: 065
  25. PREDNISOLONE [Concomitant]
     Active Substance: PREDNISOLONE
     Dosage: DOSAGE TEXT: 5 MILLIGRAM, QD
     Route: 050
  26. PREDNISOLONE [Concomitant]
     Active Substance: PREDNISOLONE
     Dosage: 5 MILLIGRAM, EVERY WEEK (DOSAGE TEXT: 5 MG, QW)
     Route: 065
  27. PREDNISOLONE [Concomitant]
     Active Substance: PREDNISOLONE
     Dosage: DOSAGE TEXT: 40 MG, QD
     Route: 065
     Dates: start: 20161014
  28. PREDNISOLONE [Concomitant]
     Active Substance: PREDNISOLONE
     Dosage: 40 MG DAILY REDUCING TO 5 MG EVERY WEEK
     Route: 065
  29. PREDNISOLONE [Concomitant]
     Active Substance: PREDNISOLONE
     Dosage: DOSAGE TEXT: 5 MG, QD
     Route: 065
  30. SULFASALAZINE [Concomitant]
     Active Substance: SULFASALAZINE
     Indication: Product used for unknown indication
     Dosage: DOSAGE TEXT: 50 MILLIGRAM, QD
     Route: 050
     Dates: start: 20161014
  31. SULFASALAZINE [Concomitant]
     Active Substance: SULFASALAZINE
     Dosage: DOSAGE TEXT: 50 MG, QD
     Route: 065
     Dates: start: 20170720
  32. USTEKINUMAB [Concomitant]
     Active Substance: USTEKINUMAB
     Indication: Product used for unknown indication
     Dosage: DOSAGE TEXT: UNK
     Route: 050
     Dates: start: 20170720
  33. CARBAZOCHROME [Concomitant]
     Active Substance: CARBAZOCHROME
     Indication: Product used for unknown indication
     Dosage: UNK
     Route: 065
  34. CARBAZOCHROME [Concomitant]
     Active Substance: CARBAZOCHROME
     Dosage: DOSAGE TEXT: 50 MILLIGRAM, QD
     Route: 050

REACTIONS (10)
  - Fistula discharge [Recovered/Resolved]
  - Infusion related reaction [Recovered/Resolved]
  - Tenderness [Recovered/Resolved]
  - Sepsis [Recovered/Resolved with Sequelae]
  - Anal fistula [Recovered/Resolved]
  - Abscess [Recovered/Resolved]
  - Fistula [Recovered/Resolved]
  - Tonsillitis [Recovered/Resolved]
  - Myalgia [Not Recovered/Not Resolved]
  - Arthralgia [Not Recovered/Not Resolved]

NARRATIVE: CASE EVENT DATE: 20160614
